FAERS Safety Report 15856083 (Version 1)
Quarter: 2019Q1

REPORT INFORMATION
  Report Type: Spontaneous
  Country: FR (occurrence: FR)
  Receive Date: 20190123
  Receipt Date: 20190123
  Transmission Date: 20190417
  Serious: Yes (Hospitalization, Other)
  Sender: FDA-Public Use
  Company Number: FR-BRISTOL-MYERS SQUIBB COMPANY-BMS-2019-003963

PATIENT
  Age: 52 Year
  Sex: Male

DRUGS (2)
  1. HYDREA [Suspect]
     Active Substance: HYDROXYUREA
     Indication: SICKLE CELL DISEASE
     Dosage: 1350 MG, (DRUG INTERVAL DOSAGE UNIT NUMBER:1 DAY)
     Route: 048
     Dates: start: 2005, end: 20181117
  2. TRACLEER [Concomitant]
     Active Substance: BOSENTAN
     Indication: PULMONARY ARTERIAL HYPERTENSION
     Dosage: 250 MG, (DRUG INTERVAL DOSAGE UNIT NUMBER:1 DAY)
     Route: 048
     Dates: start: 20180517, end: 20181013

REACTIONS (4)
  - Thrombocytopenia [Recovering/Resolving]
  - Pulmonary arterial hypertension [Unknown]
  - Neutropenia [Recovered/Resolved]
  - Aplastic anaemia [Recovering/Resolving]

NARRATIVE: CASE EVENT DATE: 2017
